FAERS Safety Report 9839006 (Version 2)
Quarter: 2014Q3

REPORT INFORMATION
  Report Type: Spontaneous
  Country: US (occurrence: US)
  Receive Date: 20140123
  Receipt Date: 20140717
  Transmission Date: 20150326
  Serious: Yes (Hospitalization, Other)
  Sender: FDA-Public Use
  Company Number: US-009507513-1401USA010137

PATIENT
  Sex: Female
  Weight: 82.99 kg

DRUGS (1)
  1. NUVARING [Suspect]
     Active Substance: ETHINYL ESTRADIOL\ETONOGESTREL
     Indication: CONTRACEPTION
     Dosage: UNK
     Route: 067
     Dates: end: 20111008

REACTIONS (8)
  - Pulmonary embolism [Unknown]
  - Iron deficiency anaemia [Unknown]
  - Embolism venous [Unknown]
  - Pain in extremity [Unknown]
  - Injury [Unknown]
  - Anxiety [Unknown]
  - Depression [Unknown]
  - Abdominal discomfort [Unknown]

NARRATIVE: CASE EVENT DATE: 201110
